FAERS Safety Report 6434000-7 (Version None)
Quarter: 2009Q4

REPORT INFORMATION
  Report Type: 
  Country: None (occurrence: None)
  Receive Date: 20091110
  Receipt Date: 20091028
  Transmission Date: 20100525
  Serious: Yes (Hospitalization, Other)
  Sender: FDA-Public Use
  Company Number: PHHY2009BR47031

PATIENT
  Age: 65 Year
  Sex: Female

DRUGS (1)
  1. ACLASTA [Suspect]
     Dosage: 5 MG/100 ML
     Dates: start: 20091026

REACTIONS (5)
  - HEADACHE [None]
  - NAUSEA [None]
  - PAIN [None]
  - SYNCOPE [None]
  - TREMOR [None]
